FAERS Safety Report 6602891-2 (Version None)
Quarter: 2010Q1

REPORT INFORMATION
  Report Type: 
  Country: None (occurrence: None)
  Receive Date: 20100226
  Receipt Date: 20100212
  Transmission Date: 20100710
  Serious: Yes (Hospitalization)
  Sender: FDA-Public Use
  Company Number: FR-ELI_LILLY_AND_COMPANY-FR201002003722

PATIENT
  Age: 73 Year
  Sex: Female

DRUGS (5)
  1. FORTEO [Suspect]
     Indication: OSTEOPOROSIS
     Dosage: 20 UG, DAILY (1/D)
     Route: 065
     Dates: start: 20091012
  2. COVERSYL [Concomitant]
     Dosage: UNK, UNKNOWN
     Route: 065
     Dates: start: 20100122
  3. CARDEGIC [Concomitant]
     Dosage: UNK, UNKNOWN
     Route: 065
     Dates: start: 20100122
  4. AMLOR [Concomitant]
     Dosage: UNK, UNKNOWN
     Route: 065
     Dates: start: 20100122
  5. LOPRESSOR [Concomitant]
     Dosage: 1 TABLET, UNK
     Route: 065
     Dates: start: 20100122

REACTIONS (2)
  - BLOOD PRESSURE INCREASED [None]
  - CEREBROVASCULAR ACCIDENT [None]
